FAERS Safety Report 8203484-6 (Version None)
Quarter: 2012Q1

REPORT INFORMATION
  Report Type: 
  Country: None (occurrence: None)
  Receive Date: 20120313
  Receipt Date: 20120305
  Transmission Date: 20120608
  Serious: Yes (Hospitalization)
  Sender: FDA-Public Use
  Company Number: 2007BI017456

PATIENT
  Age: 50 Year
  Sex: Male
  Weight: 81 kg

DRUGS (3)
  1. AVONEX [Suspect]
     Route: 030
  2. AVONEX [Suspect]
     Indication: MULTIPLE SCLEROSIS
     Route: 030
     Dates: start: 20000428
  3. AVONEX [Suspect]
     Route: 030

REACTIONS (14)
  - IN-STENT ARTERIAL RESTENOSIS [None]
  - HYPOACUSIS [None]
  - WEIGHT INCREASED [None]
  - BACK PAIN [None]
  - MYOCARDIAL INFARCTION [None]
  - HYPOMANIA [None]
  - FATIGUE [None]
  - INFLUENZA LIKE ILLNESS [None]
  - SUICIDAL IDEATION [None]
  - DEPRESSION [None]
  - MANIA [None]
  - INSOMNIA [None]
  - ASTHENIA [None]
  - DYSARTHRIA [None]
